FAERS Safety Report 9913164 (Version 1)
Quarter: 2014Q1

REPORT INFORMATION
  Report Type: Spontaneous
  Country: US (occurrence: None)
  Receive Date: 20140218
  Receipt Date: 20140218
  Transmission Date: 20141002
  Serious: Yes (Life-Threatening, Hospitalization, Disabling)
  Sender: FDA-Public Use
  Company Number: None

PATIENT
  Age: 19 None
  Sex: Male
  Weight: 56.7 kg

DRUGS (1)
  1. PREDNISONE [Suspect]
     Indication: CHRONIC OBSTRUCTIVE PULMONARY DISEASE
     Dosage: 1 PILL EVENING
     Route: 048
     Dates: start: 1979

REACTIONS (7)
  - Road traffic accident [None]
  - Rib fracture [None]
  - Lower limb fracture [None]
  - Hip fracture [None]
  - Craniocerebral injury [None]
  - Traumatic lung injury [None]
  - Pneumothorax [None]
